FAERS Safety Report 9811231 (Version 2)
Quarter: 2014Q1

REPORT INFORMATION
  Report Type: Spontaneous
  Country: US (occurrence: US)
  Receive Date: 20140110
  Receipt Date: 20140110
  Transmission Date: 20141002
  Serious: Yes (Hospitalization)
  Sender: FDA-Public Use
  Company Number: US-SANOFI-AVENTIS-2013SA021011

PATIENT
  Age: 71 Year
  Sex: Male
  Weight: 126.2 kg

DRUGS (17)
  1. CLOPIDOGREL BISULFATE [Suspect]
     Indication: ACUTE CORONARY SYNDROME
     Route: 048
     Dates: start: 20130206, end: 20130206
  2. CLOPIDOGREL BISULFATE [Suspect]
     Indication: ACUTE CORONARY SYNDROME
     Route: 048
     Dates: start: 20130207
  3. ASPIRIN [Suspect]
     Indication: ACUTE CORONARY SYNDROME
     Route: 048
  4. ASPIRIN [Suspect]
     Indication: ACUTE CORONARY SYNDROME
     Route: 048
     Dates: start: 20130205, end: 20130205
  5. ASPIRIN [Suspect]
     Indication: ACUTE CORONARY SYNDROME
     Route: 048
     Dates: start: 20130206, end: 20130216
  6. OTAMIXABAN [Suspect]
     Indication: ACUTE CORONARY SYNDROME
     Route: 042
     Dates: start: 20130206, end: 20130206
  7. FENTANYL [Concomitant]
     Dates: start: 20130206, end: 20130206
  8. HYDROCHLOROTHIAZIDE [Concomitant]
     Dates: start: 20130205
  9. LISINOPRIL [Concomitant]
     Dates: start: 20130205, end: 20130207
  10. MAGNESIUM SULFATE [Concomitant]
     Dates: start: 20130206, end: 20130206
  11. METOPROLOL SUCCINATE [Concomitant]
     Dates: start: 20130206, end: 20130207
  12. METOPROLOL SUCCINATE [Concomitant]
     Dates: start: 20130205
  13. VERSED [Concomitant]
     Dates: start: 20130206, end: 20130206
  14. GLYCERYL TRINITRATE [Concomitant]
     Dates: start: 20130206, end: 20130207
  15. POTASSIUM CHLORIDE [Concomitant]
     Dates: start: 20130206, end: 20130206
  16. ATORVASTATIN [Concomitant]
     Dates: start: 20130207
  17. QUINAPRIL [Concomitant]
     Dates: start: 20130207

REACTIONS (1)
  - Gastrointestinal haemorrhage [Recovered/Resolved]
